FAERS Safety Report 19890505 (Version 1)
Quarter: 2021Q3

REPORT INFORMATION
  Report Type: Spontaneous
  Country: DE (occurrence: DE)
  Receive Date: 20210928
  Receipt Date: 20210928
  Transmission Date: 20211014
  Serious: Yes (Other)
  Sender: FDA-Public Use
  Company Number: DE-AMRYT PHARMACEUTICALS DAC-AEGR005138

PATIENT

DRUGS (8)
  1. INSULIN GLARGINE [Concomitant]
     Active Substance: INSULIN GLARGINE
     Indication: DIABETES MELLITUS
     Dosage: 30 INTERNATIONAL UNIT, QD
  2. MYALEPTA [Suspect]
     Active Substance: METRELEPTIN
     Indication: PARTIAL LIPODYSTROPHY
     Dosage: 5 MILLIGRAM, QD
     Route: 058
  3. METFORMIN [Concomitant]
     Active Substance: METFORMIN HYDROCHLORIDE
     Indication: DIABETES MELLITUS
     Dosage: 1000 MILLIGRAM, BID
  4. SIMVASTATIN. [Concomitant]
     Active Substance: SIMVASTATIN
     Indication: HYPERTRIGLYCERIDAEMIA
     Dosage: 40 MILLIGRAM, QD
  5. DAPAGLIFLOZIN. [Concomitant]
     Active Substance: DAPAGLIFLOZIN
     Indication: DIABETES MELLITUS
  6. OMEGA 3 [FISH OIL] [Concomitant]
     Active Substance: FISH OIL
     Indication: HYPERTRIGLYCERIDAEMIA
  7. SEMAGLUTIDE [Concomitant]
     Active Substance: SEMAGLUTIDE
     Indication: DIABETES MELLITUS
  8. GEMFIBROZIL. [Concomitant]
     Active Substance: GEMFIBROZIL
     Indication: HYPERTRIGLYCERIDAEMIA

REACTIONS (1)
  - Injection site hypersensitivity [Recovering/Resolving]
